FAERS Safety Report 6648806-2 (Version None)
Quarter: 2010Q1

REPORT INFORMATION
  Report Type: 
  Country: None (occurrence: None)
  Receive Date: 20100324
  Receipt Date: 20100312
  Transmission Date: 20100710
  Serious: Yes (Hospitalization, Disabling, Other)
  Sender: FDA-Public Use
  Company Number: PHHY2010GB16490

PATIENT
  Age: 64 Year
  Sex: Female

DRUGS (5)
  1. DICLOFENAC [Suspect]
     Dosage: 150 MG, QD
     Route: 048
  2. RIVAROXABAN [Suspect]
     Indication: HIP ARTHROPLASTY
     Dosage: 10 MG, QD
     Route: 048
     Dates: start: 20091218, end: 20091231
  3. DICLOFENAC [Concomitant]
     Dosage: 50 MG, TID
     Route: 048
  4. AMITRIPTYLINE HCL [Concomitant]
     Dosage: 25 MG, QD
     Route: 048
  5. LISINOPRIL [Concomitant]
     Dosage: 10 MG, UNK
     Route: 048

REACTIONS (8)
  - ACTIVATED PARTIAL THROMBOPLASTIN TIME PROLONGED [None]
  - BLOOD FIBRINOGEN INCREASED [None]
  - COAGULATION FACTOR X LEVEL INCREASED [None]
  - HAEMATOMA [None]
  - HIP ARTHROPLASTY [None]
  - POST PROCEDURAL HAEMORRHAGE [None]
  - PROTHROMBIN TIME PROLONGED [None]
  - WOUND HAEMORRHAGE [None]
